FAERS Safety Report 5433623-1 (Version None)
Quarter: 2007Q3

REPORT INFORMATION
  Report Type: 
  Country: None (occurrence: None)
  Receive Date: 20070831
  Receipt Date: 20070820
  Transmission Date: 20080115
  Serious: Yes (Death, Hospitalization)
  Sender: FDA-Public Use
  Company Number: TR-NOVOPROD-265364

PATIENT
  Age: 6 Day
  Sex: Female
  Weight: 1.46 kg

DRUGS (4)
  1. NOVOSEVEN [Suspect]
     Indication: DISSEMINATED INTRAVASCULAR COAGULATION
     Dosage: 80 UG/KG, UNK
     Route: 042
     Dates: start: 20050305
  2. AMPICILLIN [Concomitant]
  3. AMIKACINE                          /00391001/ [Concomitant]
  4. FENTANYL [Concomitant]
     Dosage: 5 DOSES
     Route: 042
     Dates: start: 20050305

REACTIONS (1)
  - DISSEMINATED INTRAVASCULAR COAGULATION [None]
